APPROVED DRUG PRODUCT: BIPHETAMINE 20
Active Ingredient: AMPHETAMINE RESIN COMPLEX; DEXTROAMPHETAMINE RESIN COMPLEX
Strength: EQ 10MG BASE;EQ 10MG BASE
Dosage Form/Route: CAPSULE, EXTENDED RELEASE;ORAL
Application: N010093 | Product #003
Applicant: UCB INC
Approved: Approved Prior to Jan 1, 1982 | RLD: No | RS: No | Type: DISCN